FAERS Safety Report 9457234 (Version 2)
Quarter: 2013Q3

REPORT INFORMATION
  Report Type: Spontaneous
  Country: IT (occurrence: IT)
  Receive Date: 20130814
  Receipt Date: 20130820
  Transmission Date: 20140515
  Serious: Yes (Other)
  Sender: FDA-Public Use
  Company Number: IT-BRISTOL-MYERS SQUIBB COMPANY-19166305

PATIENT
  Age: 77 Year
  Sex: Female

DRUGS (8)
  1. COUMADIN TABS 5 MG [Suspect]
     Indication: DEEP VEIN THROMBOSIS
     Route: 048
     Dates: start: 20130101, end: 20130730
  2. LASITONE [Suspect]
     Indication: HYPERTENSION
     Dosage: 1DF:25+37 MG CAPS
     Route: 048
     Dates: start: 20130101, end: 20130730
  3. COTAREG [Concomitant]
     Dosage: 1DF:320/12.5 MG TABS
     Route: 048
  4. SEQUACOR [Concomitant]
     Dosage: TABS
     Route: 048
  5. CREON [Concomitant]
     Route: 048
  6. DEURSIL [Concomitant]
     Route: 048
  7. VASEXTEN [Concomitant]
     Route: 048
  8. LUVION [Concomitant]
     Route: 048

REACTIONS (2)
  - Orthostatic hypotension [Recovering/Resolving]
  - Dyspnoea [Recovering/Resolving]
